FAERS Safety Report 14197145 (Version 6)
Quarter: 2018Q1

REPORT INFORMATION
  Report Type: Spontaneous
  Country: US (occurrence: US)
  Receive Date: 20171116
  Receipt Date: 20180329
  Transmission Date: 20180508
  Serious: Yes (Hospitalization, Other)
  Sender: FDA-Public Use
  Company Number: US-ACTELION-A-US2017-162379

PATIENT
  Age: 80 Year
  Sex: Female

DRUGS (4)
  1. UPTRAVI [Suspect]
     Active Substance: SELEXIPAG
     Indication: PULMONARY ARTERIAL HYPERTENSION
     Dosage: 600 MCG, BID
     Route: 048
  2. AMBRISENTAN [Suspect]
     Active Substance: AMBRISENTAN
     Indication: PULMONARY ARTERIAL HYPERTENSION
     Dosage: 10 MG, QD
     Route: 065
     Dates: start: 20161207
  3. UPTRAVI [Suspect]
     Active Substance: SELEXIPAG
     Dosage: 400 MCG, BID
     Route: 048
  4. XARELTO [Concomitant]
     Active Substance: RIVAROXABAN

REACTIONS (20)
  - Nausea [Not Recovered/Not Resolved]
  - Sepsis [Unknown]
  - Decreased appetite [Not Recovered/Not Resolved]
  - Arthralgia [Not Recovered/Not Resolved]
  - Hypersomnia [Unknown]
  - Bedridden [Not Recovered/Not Resolved]
  - Confusional state [Not Recovered/Not Resolved]
  - Scratch [Unknown]
  - Musculoskeletal pain [Not Recovered/Not Resolved]
  - Headache [Not Recovered/Not Resolved]
  - Influenza like illness [Unknown]
  - Pain in jaw [Not Recovered/Not Resolved]
  - Fall [Unknown]
  - Rib fracture [Unknown]
  - Fatigue [Not Recovered/Not Resolved]
  - Condition aggravated [Unknown]
  - Sleep disorder [Unknown]
  - Pain [Not Recovered/Not Resolved]
  - Myalgia [Not Recovered/Not Resolved]
  - Pain in extremity [Not Recovered/Not Resolved]

NARRATIVE: CASE EVENT DATE: 20171109
